FAERS Safety Report 4901988-2 (Version None)
Quarter: 2006Q1

REPORT INFORMATION
  Report Type: 
  Country: None (occurrence: None)
  Receive Date: 20060206
  Receipt Date: 20051025
  Transmission Date: 20060701
  Serious: Yes (Death)
  Sender: FDA-Public Use
  Company Number: GB-ABBOTT-05P-167-0315363-00

PATIENT
  Sex: Male
  Weight: 87 kg

DRUGS (9)
  1. HUMIRA [Suspect]
     Indication: RHEUMATOID ARTHRITIS
     Route: 058
     Dates: start: 20050101
  2. ACETAMINOPHEN W/ PROPOXYPHENE HCL [Concomitant]
     Indication: DRUG USE FOR UNKNOWN INDICATION
     Dates: end: 20051022
  3. FOLIC ACID [Concomitant]
     Indication: DRUG USE FOR UNKNOWN INDICATION
     Dates: end: 20051022
  4. SULFASALAZINE [Concomitant]
     Indication: RHEUMATOID ARTHRITIS
     Dates: end: 20051022
  5. METHOTREXATE [Concomitant]
     Indication: RHEUMATOID ARTHRITIS
     Dates: start: 20020501, end: 20051022
  6. WARFARIN SODIUM [Concomitant]
     Indication: CORONARY ARTERY SURGERY
     Dates: end: 20051022
  7. WARFARIN SODIUM [Concomitant]
     Indication: AORTIC VALVE REPLACEMENT
  8. RAMIPRIL [Concomitant]
     Indication: HYPERTENSION
     Dates: end: 20051022
  9. PREDNISOLONE [Concomitant]
     Indication: RHEUMATOID ARTHRITIS
     Dates: start: 20050426, end: 20051022

REACTIONS (2)
  - MYOCARDIAL INFARCTION [None]
  - URINARY RETENTION [None]
